FAERS Safety Report 10760726 (Version 1)
Quarter: 2015Q1

REPORT INFORMATION
  Report Type: Spontaneous
  Country: IT (occurrence: None)
  Receive Date: 20150202
  Receipt Date: 20150202
  Transmission Date: 20150721
  Serious: Yes (Other)
  Sender: FDA-Public Use
  Company Number: IT-2015VAL000071

PATIENT
  Age: 25 Year
  Sex: Male

DRUGS (3)
  1. CARBAMAZEPINE (CARBAMAZEPINE) UNKNOWN [Suspect]
     Active Substance: CARBAMAZEPINE
     Indication: EPILEPSY
  2. DEXAMETHASONE (DEXAMETHASONE) [Concomitant]
     Active Substance: DEXAMETHASONE
  3. FLUDROCORTISONE (FLUDROCORTISONE) [Concomitant]

REACTIONS (4)
  - Fatigue [None]
  - Drug interaction [None]
  - Adrenal insufficiency [None]
  - Disturbance in attention [None]
